FAERS Safety Report 9218581 (Version 1)
Quarter: 2013Q2

REPORT INFORMATION
  Report Type: Spontaneous
  Country: US (occurrence: None)
  Receive Date: 20130405
  Receipt Date: 20130405
  Transmission Date: 20140414
  Serious: Yes (Hospitalization)
  Sender: FDA-Public Use
  Company Number: None

PATIENT
  Age: 42 Year
  Sex: Female
  Weight: 67.1 kg

DRUGS (1)
  1. ACETAMINOPHEN [Suspect]
     Dates: start: 20120809

REACTIONS (2)
  - Overdose [None]
  - Toxicity to various agents [None]
